FAERS Safety Report 10158183 (Version 1)
Quarter: 2014Q2

REPORT INFORMATION
  Report Type: Spontaneous
  Country: CO (occurrence: CO)
  Receive Date: 20140507
  Receipt Date: 20140507
  Transmission Date: 20141212
  Serious: Yes (Hospitalization)
  Sender: FDA-Public Use
  Company Number: PHHY2014CO054843

PATIENT
  Age: 20 Year
  Sex: Female

DRUGS (3)
  1. PREDNISONE [Suspect]
     Dosage: 5 MG, PER DAY
  2. AZATHIOPRINE [Suspect]
     Dosage: 50 MG, BID
  3. RITUXIMAB [Suspect]
     Dosage: 2 G, UNK

REACTIONS (10)
  - Hepatosplenomegaly [Recovered/Resolved]
  - Abdominal pain [Recovered/Resolved]
  - Bronchitis [Recovered/Resolved]
  - Pallor [Recovered/Resolved]
  - Pneumocystis jirovecii pneumonia [Recovered/Resolved]
  - Fatigue [Recovered/Resolved]
  - Asthenia [Recovered/Resolved]
  - Decreased appetite [Recovered/Resolved]
  - Weight decreased [Recovered/Resolved]
  - Productive cough [Recovered/Resolved]
